FAERS Safety Report 6568751-0 (Version None)
Quarter: 2010Q1

REPORT INFORMATION
  Report Type: 
  Country: None (occurrence: None)
  Receive Date: 20100203
  Receipt Date: 20100201
  Transmission Date: 20100710
  Serious: Yes (Life-Threatening, Hospitalization)
  Sender: FDA-Public Use
  Company Number: PHHY2009DE07155

PATIENT
  Age: 54 Year
  Sex: Male
  Weight: 77 kg

DRUGS (1)
  1. DICLOFENAC [Suspect]
     Indication: SCIATICA
     Dosage: 75 ML/DAY
     Route: 030
     Dates: start: 20080810, end: 20080810

REACTIONS (6)
  - ANAPHYLACTIC REACTION [None]
  - BLOOD GLUCOSE INCREASED [None]
  - CIRCULATORY COLLAPSE [None]
  - HYPERHIDROSIS [None]
  - PARAESTHESIA [None]
  - WHITE BLOOD CELL COUNT DECREASED [None]
